FAERS Safety Report 6301584-9 (Version None)
Quarter: 2009Q3

REPORT INFORMATION
  Report Type: 
  Country: None (occurrence: None)
  Receive Date: 20090805
  Receipt Date: 20090720
  Transmission Date: 20100115
  Serious: Yes (Death)
  Sender: FDA-Public Use
  Company Number: 2009002186

PATIENT
  Sex: Male
  Weight: 48.7 kg

DRUGS (10)
  1. ERLOTINIB(ERLOTINIB) (TABLET) (ERLOTINIB) [Suspect]
     Indication: NON-SMALL CELL LUNG CANCER
     Dosage: (150 MG,QD),ORAL
     Route: 048
     Dates: start: 20090604, end: 20090616
  2. OXYCONTIN [Concomitant]
  3. OXYCODONE HCL [Concomitant]
  4. ULTRACET [Concomitant]
  5. FENTANYL-100 [Concomitant]
  6. TRIMEBUTINE MALEATE (TRIMEBUTINE MALEATE) [Concomitant]
  7. MEGESTROL ACETATE [Concomitant]
  8. LOPERAMIDE OXIDE (LOPERAMIDE OXIDE) [Concomitant]
  9. DULCALAX [Concomitant]
  10. DOCUSATE SODIUM (DOCUSATE SODIUM) [Concomitant]

REACTIONS (6)
  - CONSTIPATION [None]
  - DIARRHOEA [None]
  - DISEASE PROGRESSION [None]
  - INTERSTITIAL LUNG DISEASE [None]
  - PNEUMONIA [None]
  - RESPIRATORY FAILURE [None]
